FAERS Safety Report 22313251 (Version 1)
Quarter: 2023Q2

REPORT INFORMATION
  Report Type: Spontaneous
  Country: CA (occurrence: CA)
  Receive Date: 20230512
  Receipt Date: 20230512
  Transmission Date: 20230722
  Serious: Yes (Other)
  Sender: FDA-Public Use
  Company Number: CA-MYLANLABS-2023M1041626

PATIENT
  Sex: Female
  Weight: 49.89 kg

DRUGS (3)
  1. EFFEXOR XR [Suspect]
     Active Substance: VENLAFAXINE HYDROCHLORIDE
     Indication: Depression
     Dosage: 1 DOSAGE FORM, QD (ONE CAPSULE ONCE A DAY FOR 1 WEEK THEN, 2 CAPSULES ONCE A DAY)
     Route: 065
     Dates: start: 20141110
  2. EFFEXOR XR [Suspect]
     Active Substance: VENLAFAXINE HYDROCHLORIDE
     Dosage: 2 DOSAGE FORM, QD (ONE CAPSULE ONCE A DAY FOR 1 WEEK THEN, 2 CAPSULES ONCE A DAY)
     Route: 065
     Dates: end: 201703
  3. EFFEXOR XR [Suspect]
     Active Substance: VENLAFAXINE HYDROCHLORIDE
     Dosage: UNK (UNK (STOP DATE: 2018 OR 2019)
     Route: 065
     Dates: start: 20150201

REACTIONS (11)
  - Kidney infection [Not Recovered/Not Resolved]
  - Angle closure glaucoma [Unknown]
  - Hallucination [Not Recovered/Not Resolved]
  - Electric shock sensation [Not Recovered/Not Resolved]
  - Renal pain [Not Recovered/Not Resolved]
  - Speech disorder [Not Recovered/Not Resolved]
  - Hypoaesthesia [Not Recovered/Not Resolved]
  - Loss of libido [Not Recovered/Not Resolved]
  - Vision blurred [Not Recovered/Not Resolved]
  - Asthenia [Not Recovered/Not Resolved]
  - Hyperhidrosis [Not Recovered/Not Resolved]
